FAERS Safety Report 14231245 (Version 1)
Quarter: 2017Q4

REPORT INFORMATION
  Report Type: Spontaneous
  Country: US (occurrence: US)
  Receive Date: 20171128
  Receipt Date: 20171128
  Transmission Date: 20180321
  Serious: No
  Sender: FDA-Public Use
  Company Number: US-JNJFOC-20171035312

PATIENT
  Age: 7 Decade
  Sex: Female

DRUGS (2)
  1. MENS ROGAINE UNSCENTED FORMULA [Suspect]
     Active Substance: MINOXIDIL
     Indication: ALOPECIA
     Route: 061
  2. MENS ROGAINE UNSCENTED FORMULA [Suspect]
     Active Substance: MINOXIDIL
     Route: 061

REACTIONS (4)
  - Alopecia [Not Recovered/Not Resolved]
  - Intentional product misuse [Unknown]
  - Product use issue [Unknown]
  - Hair growth abnormal [Not Recovered/Not Resolved]
